FAERS Safety Report 8771671 (Version 1)
Quarter: 2012Q4

REPORT INFORMATION
  Report Type: 
  Country: US (occurrence: US)
  Receive Date: 20120906
  Receipt Date: 20120906
  Transmission Date: 20130627
  Serious: No
  Sender: FDA-Public Use
  Company Number: US-009507513-2012SP034300

PATIENT

DRUGS (1)
  1. COPPERTONE WATER BABIES SPF 55 [Suspect]
     Indication: PRODUCT USED FOR UNKNOWN INDICATION
     Dosage: UNK UNK, BID
     Route: 061
     Dates: start: 2012

REACTIONS (2)
  - Pain [Not Recovered/Not Resolved]
  - Sunburn [Not Recovered/Not Resolved]
